FAERS Safety Report 24938271 (Version 1)
Quarter: 2025Q1

REPORT INFORMATION
  Report Type: Spontaneous
  Country: FR (occurrence: FR)
  Receive Date: 20250206
  Receipt Date: 20250206
  Transmission Date: 20250408
  Serious: Yes (Other)
  Sender: TEVA
  Company Number: None

PATIENT
  Age: 49 Year
  Sex: Male

DRUGS (3)
  1. LEVOFLOXACIN [Suspect]
     Active Substance: LEVOFLOXACIN
     Indication: Intervertebral discitis
     Route: 048
     Dates: start: 20241004
  2. CLOXACILLIN [Suspect]
     Active Substance: CLOXACILLIN
     Indication: Intervertebral discitis
     Route: 042
     Dates: start: 20240918, end: 20241004
  3. CLINDAMYCIN [Suspect]
     Active Substance: CLINDAMYCIN
     Indication: Intervertebral discitis
     Dosage: 900 MG 3X/DAY; CLINDAMYCINE BASE
     Route: 048
     Dates: start: 20241004

REACTIONS (1)
  - Acute kidney injury [Not Recovered/Not Resolved]

NARRATIVE: CASE EVENT DATE: 20241009
